FAERS Safety Report 12367034 (Version 1)
Quarter: 2016Q2

REPORT INFORMATION
  Report Type: Report from Study
  Country: JP (occurrence: JP)
  Receive Date: 20160513
  Receipt Date: 20160513
  Transmission Date: 20160815
  Serious: Yes (Hospitalization)
  Sender: FDA-Public Use
  Company Number: JP-009507513-1605JPN006086

PATIENT
  Age: 81 Year
  Sex: Male
  Weight: 59.7 kg

DRUGS (13)
  1. AMITIZA [Suspect]
     Active Substance: LUBIPROSTONE
     Dosage: 24 MICROGRAM, TWICE A DAY
     Route: 048
     Dates: start: 20130606, end: 20140208
  2. GLIMICRON [Suspect]
     Active Substance: GLICLAZIDE
     Indication: TYPE 2 DIABETES MELLITUS
     Dosage: 20 MG, ONCE A DAY
     Route: 048
     Dates: start: 20140208, end: 20140405
  3. FLIVAS [Suspect]
     Active Substance: NAFTOPIDIL
     Dosage: 75 MG, ONCE A DAY
     Route: 048
     Dates: end: 20140405
  4. AMARYL [Suspect]
     Active Substance: GLIMEPIRIDE
     Indication: TYPE 2 DIABETES MELLITUS
     Dosage: 0.5 MG, ONCE A DAY
     Route: 048
     Dates: start: 20110924, end: 20140208
  5. SEIBULE [Suspect]
     Active Substance: MIGLITOL
     Indication: TYPE 2 DIABETES MELLITUS
     Dosage: 50 MG, 3 TIMES A DAY
     Route: 048
     Dates: end: 20140405
  6. ARTIST [Suspect]
     Active Substance: CARVEDILOL
     Dosage: 2.5 MG, TWICE A DAY
     Route: 048
     Dates: end: 20140405
  7. MEDET [Suspect]
     Active Substance: METFORMIN HYDROCHLORIDE
     Indication: TYPE 2 DIABETES MELLITUS
     Dosage: 250 MG, TWICE A DAY
     Route: 048
     Dates: end: 20130813
  8. EPADEL S [Suspect]
     Active Substance: ICOSAPENT ETHYL
     Dosage: 900 MG, TWICE A DAY
     Route: 048
     Dates: end: 20140405
  9. BAYASPIRIN [Suspect]
     Active Substance: ASPIRIN
     Dosage: 100 MG, ONCE A DAY
     Route: 048
     Dates: end: 20140405
  10. ZETIA [Suspect]
     Active Substance: EZETIMIBE
     Dosage: 10 MG, ONCE A DAY
     Route: 048
     Dates: end: 20140405
  11. GLACTIV [Suspect]
     Active Substance: SITAGLIPTIN
     Indication: TYPE 2 DIABETES MELLITUS
     Dosage: 50 MG, ONCE A DAY
     Route: 048
     Dates: start: 20110924, end: 20140405
  12. URSO [Suspect]
     Active Substance: URSODIOL
     Dosage: 100 MG, 3 TIMES A DAY
     Route: 048
     Dates: start: 20130926, end: 20140308
  13. OMEPRAL [Suspect]
     Active Substance: OMEPRAZOLE
     Dosage: 10 MG, ONCE A DAY
     Route: 048
     Dates: end: 20140405

REACTIONS (1)
  - Cholangitis [Unknown]

NARRATIVE: CASE EVENT DATE: 20140405
